FAERS Safety Report 23856396 (Version 2)
Quarter: 2024Q2

REPORT INFORMATION
  Report Type: Spontaneous
  Country: BR (occurrence: BR)
  Receive Date: 20240515
  Receipt Date: 20240619
  Transmission Date: 20240716
  Serious: Yes (Other)
  Sender: FDA-Public Use
  Company Number: BR-002147023-NVSC2024BR083891

PATIENT
  Age: 25 Year
  Sex: Male
  Weight: 100 kg

DRUGS (1)
  1. METHYLPHENIDATE HYDROCHLORIDE [Suspect]
     Active Substance: METHYLPHENIDATE HYDROCHLORIDE
     Indication: Attention deficit hyperactivity disorder
     Dosage: 40 MG, QD
     Route: 048

REACTIONS (9)
  - Angina pectoris [Unknown]
  - Paraesthesia [Unknown]
  - Anxiety [Unknown]
  - Feeling abnormal [Unknown]
  - Malaise [Unknown]
  - Peripheral coldness [Unknown]
  - Mood altered [Unknown]
  - Confusional state [Unknown]
  - Product quality issue [Unknown]

NARRATIVE: CASE EVENT DATE: 20240320
